FAERS Safety Report 23367787 (Version 1)
Quarter: 2024Q1

REPORT INFORMATION
  Report Type: Report from Study
  Country: US (occurrence: US)
  Receive Date: 20240104
  Receipt Date: 20240104
  Transmission Date: 20240409
  Serious: Yes (Hospitalization, Other)
  Sender: FDA-Public Use
  Company Number: US-ABBVIE-5570034

PATIENT
  Age: 74 Year
  Sex: Female
  Weight: 77 kg

DRUGS (6)
  1. UBRELVY [Suspect]
     Active Substance: UBROGEPANT
     Indication: Migraine
     Dosage: FORM STRENGTH: 100 MILLIGRAM
     Route: 048
     Dates: start: 20231216, end: 20231216
  2. GABAPENTIN [Concomitant]
     Active Substance: GABAPENTIN
     Indication: Seizure
  3. TRAZODONE HCL [Concomitant]
     Active Substance: TRAZODONE HYDROCHLORIDE
     Indication: Sleep disorder
     Dosage: AT NIGHT
  4. TOPAMAX [Concomitant]
     Active Substance: TOPIRAMATE
     Indication: Seizure
  5. ZOLOFT [Concomitant]
     Active Substance: SERTRALINE HYDROCHLORIDE
     Indication: Depression
  6. CLOPIDOGREL [Concomitant]
     Active Substance: CLOPIDOGREL BISULFATE
     Indication: Thrombosis prophylaxis

REACTIONS (4)
  - Seizure [Recovered/Resolved]
  - Cerebral haemorrhage [Unknown]
  - Confusional state [Recovered/Resolved]
  - Urinary tract infection [Recovered/Resolved]

NARRATIVE: CASE EVENT DATE: 20231220
